FAERS Safety Report 6123891-5 (Version None)
Quarter: 2009Q1

REPORT INFORMATION
  Report Type: 
  Country: None (occurrence: None)
  Receive Date: 20090319
  Receipt Date: 20090311
  Transmission Date: 20090719
  Serious: Yes (Hospitalization)
  Sender: FDA-Public Use
  Company Number: US-BIOGENIDEC-2009BI003311

PATIENT
  Age: 63 Year
  Sex: Male

DRUGS (2)
  1. TYSABRI [Suspect]
     Indication: MULTIPLE SCLEROSIS
     Route: 042
     Dates: start: 20040701, end: 20060701
  2. TYSABRI [Suspect]
     Route: 042
     Dates: start: 20061011, end: 20081124

REACTIONS (5)
  - COMA [None]
  - PLEURAL FIBROSIS [None]
  - PNEUMONIA [None]
  - SINUSITIS [None]
  - SKIN ULCER [None]
